FAERS Safety Report 9751984 (Version 1)
Quarter: 2013Q4

REPORT INFORMATION
  Report Type: Spontaneous
  Country: US (occurrence: US)
  Receive Date: 20131213
  Receipt Date: 20131213
  Transmission Date: 20140711
  Serious: No
  Sender: FDA-Public Use
  Company Number: US-009507513-1312USA004322

PATIENT
  Age: 21 Year
  Sex: Female
  Weight: 52.15 kg

DRUGS (3)
  1. NUVARING [Suspect]
     Indication: CONTRACEPTION
     Dosage: 3 WEEK IN ONED WEEK RING FREE BREAK
     Route: 067
     Dates: start: 20131201, end: 20131208
  2. OMEGA-3 MARINE TRIGLYCERIDES [Concomitant]
  3. ASCORBIC ACID [Concomitant]
     Dosage: DAILY

REACTIONS (4)
  - Abdominal distension [Recovered/Resolved]
  - Hot flush [Recovered/Resolved]
  - Nausea [Recovered/Resolved]
  - Vomiting [Recovered/Resolved]
